FAERS Safety Report 6384056-5 (Version None)
Quarter: 2009Q3

REPORT INFORMATION
  Report Type: 
  Country: None (occurrence: None)
  Receive Date: 20090929
  Receipt Date: 20090915
  Transmission Date: 20100115
  Serious: Yes (Other)
  Sender: FDA-Public Use
  Company Number: 8052322

PATIENT
  Age: 62 Year
  Sex: Female

DRUGS (4)
  1. PREDNISOLONE [Suspect]
     Dosage: PO
     Route: 048
  2. PREDNISOLONE [Suspect]
     Dosage: PO
     Route: 048
  3. METHYLPREDNISOLONE [Suspect]
     Dosage: 500 MG /D
  4. CYCLOPHOSPHAMIDE [Concomitant]

REACTIONS (7)
  - ANTI-GLOMERULAR BASEMENT MEMBRANE ANTIBODY POSITIVE [None]
  - CLOSTRIDIUM DIFFICILE COLITIS [None]
  - DIALYSIS [None]
  - DISEASE RECURRENCE [None]
  - GLOMERULONEPHRITIS RAPIDLY PROGRESSIVE [None]
  - MYOCARDIAL INFARCTION [None]
  - PNEUMOCYSTIS JIROVECI PNEUMONIA [None]
